FAERS Safety Report 4269853-4 (Version None)
Quarter: 2004Q1

REPORT INFORMATION
  Report Type: 
  Country: None (occurrence: None)
  Receive Date: 20040112
  Receipt Date: 20040112
  Transmission Date: 20041129
  Serious: Yes (Hospitalization)
  Sender: FDA-Public Use
  Company Number: None

PATIENT
  Age: 65 Year
  Sex: Male

DRUGS (12)
  1. DIGOXIN [Suspect]
     Indication: CARDIAC FAILURE CONGESTIVE
     Dosage: 0.125 MG QD
     Dates: start: 20021101
  2. SPIRONOLACTONE [Suspect]
     Indication: CARDIAC FAILURE CONGESTIVE
     Dosage: 25 MG BID
     Dates: start: 20021101
  3. SUCRALFATE [Concomitant]
  4. METOPROLOL [Concomitant]
  5. THEOPHYLLINE [Concomitant]
  6. FUROSEMIDE [Concomitant]
  7. NIFEDIPINE [Concomitant]
  8. CLONIDINE [Concomitant]
  9. LEVOTHYROXINE SODIUM [Concomitant]
  10. BUSPIRONE [Concomitant]
  11. HYDROXYZINE [Concomitant]
  12. MIRTAZA (PARTIALLY ILLEGIBLE) [Concomitant]

REACTIONS (4)
  - DRUG TOXICITY [None]
  - HYPERKALAEMIA [None]
  - NAUSEA [None]
  - VOMITING [None]
